FAERS Safety Report 18281454 (Version 1)
Quarter: 2020Q3

REPORT INFORMATION
  Report Type: Spontaneous
  Country: US (occurrence: US)
  Receive Date: 20200916
  Receipt Date: 20200916
  Transmission Date: 20201103
  Serious: No
  Sender: FDA-Public Use
  Company Number: None

PATIENT
  Sex: Female

DRUGS (1)
  1. BIKTARVY [Suspect]
     Active Substance: BICTEGRAVIR SODIUM\EMTRICITABINE\TENOFOVIR ALAFENAMIDE FUMARATE
     Indication: HIV INFECTION
     Dosage: ?          OTHER DOSE:50/200/25 MG;?
     Route: 048
     Dates: start: 20200519

REACTIONS (6)
  - Chest discomfort [None]
  - Lactic acidosis [None]
  - Abdominal pain [None]
  - Hepatotoxicity [None]
  - Dyspnoea [None]
  - Asthenia [None]
